FAERS Safety Report 8505671 (Version 15)
Quarter: 2015Q2

REPORT INFORMATION
  Report Type: Report from Study
  Country: JP (occurrence: JP)
  Receive Date: 20120412
  Receipt Date: 20150626
  Transmission Date: 20150821
  Serious: Yes (Death, Life-Threatening, Hospitalization)
  Sender: FDA-Public Use
  Company Number: PHHO2012JP002456

PATIENT
  Age: 64 Year
  Sex: Male
  Weight: 59 kg

DRUGS (39)
  1. JANUVIA [Concomitant]
     Active Substance: SITAGLIPTIN PHOSPHATE
     Dosage: 50 MG, DAILY (1 TABLET PER DAY)
     Route: 048
     Dates: start: 20120923, end: 20130124
  2. ALDACTONE [Concomitant]
     Active Substance: SPIRONOLACTONE
     Indication: POLYURIA
     Dosage: 25 MG, QD
     Route: 048
     Dates: start: 20090208, end: 20130520
  3. ARTIST [Concomitant]
     Active Substance: CARVEDILOL
     Indication: CARDIAC FAILURE CHRONIC
     Dosage: 1.25 MG, UNK
     Route: 048
     Dates: start: 20120302, end: 20130419
  4. GLIMEPIRIDE. [Concomitant]
     Active Substance: GLIMEPIRIDE
     Indication: DIABETES MELLITUS
     Dosage: 2 MG, QD
     Route: 048
     Dates: start: 20120417, end: 20120918
  5. ALISKIREN [Suspect]
     Active Substance: ALISKIREN
     Indication: CARDIAC FAILURE
     Dosage: UNK
     Route: 048
     Dates: start: 20091027, end: 20120110
  6. TAKEPRON [Concomitant]
     Active Substance: LANSOPRAZOLE
     Indication: PROPHYLAXIS AGAINST GASTROINTESTINAL ULCER
     Dosage: 15 MG, UNK
     Route: 048
     Dates: start: 20090422
  7. DIART [Concomitant]
     Active Substance: AZOSEMIDE
     Indication: POLYURIA
     Dosage: 120 MG, UNK
     Route: 048
     Dates: start: 20090422
  8. LASIX [Concomitant]
     Active Substance: FUROSEMIDE
     Dosage: UNK
     Dates: end: 20130124
  9. LUPRAC [Concomitant]
     Active Substance: TORSEMIDE
     Dosage: 8 MG, UNK
     Route: 048
  10. SLOW-K [Concomitant]
     Active Substance: POTASSIUM CHLORIDE
     Dosage: 1800 MG, QD
     Dates: start: 20121127
  11. MUCOSTA [Concomitant]
     Active Substance: REBAMIPIDE
     Indication: GASTRITIS PROPHYLAXIS
     Dosage: 300 MG, UNK
     Route: 048
     Dates: start: 20120709
  12. UNASYN [Concomitant]
     Active Substance: AMPICILLIN SODIUM\SULBACTAM SODIUM
     Indication: ANTIBIOTIC PROPHYLAXIS
     Dosage: 750 MG, QD
     Route: 048
     Dates: start: 20120313, end: 20120315
  13. TANADOPA [Concomitant]
     Indication: CARDIAC FAILURE CHRONIC
     Dosage: 4 G, DAILY
     Route: 048
     Dates: start: 20120605
  14. TANADOPA [Concomitant]
     Dosage: 2 G, DAILY (ONCE AFTER BREAKFAST AND ONCE AFTER THE EVENING MEAL)
     Route: 048
     Dates: start: 20120605
  15. TETUCUR [Concomitant]
     Dosage: 100 MG, UNK
     Route: 048
     Dates: start: 20120709
  16. SLOW-K [Concomitant]
     Active Substance: POTASSIUM CHLORIDE
     Dosage: 1200 MG, UNK
     Route: 048
  17. ENALAPRIL [Suspect]
     Active Substance: ENALAPRIL
     Indication: CARDIAC FAILURE
     Dosage: UNK
     Dates: start: 20091027, end: 20120110
  18. LASIX [Concomitant]
     Active Substance: FUROSEMIDE
     Indication: POLYURIA
     Dosage: 20 MG, UNK
     Route: 048
     Dates: start: 20120214, end: 20120227
  19. SLOW-K [Concomitant]
     Active Substance: POTASSIUM CHLORIDE
     Dosage: 1200 MG, DAILY (ONCE AFTER BREAKFAST AND ONCE AFTER THE EVENING MEAL)
     Route: 048
     Dates: start: 20120927
  20. ALLORINE [Concomitant]
     Indication: HYPERURICAEMIA
     Dosage: 100 MG, BID
     Route: 048
     Dates: start: 20090422
  21. DIART [Concomitant]
     Active Substance: AZOSEMIDE
     Indication: CARDIAC FAILURE CHRONIC
     Dosage: 60 MG, QD
     Route: 048
     Dates: start: 20120519, end: 20130520
  22. UNASYN [Concomitant]
     Active Substance: AMPICILLIN SODIUM\SULBACTAM SODIUM
     Indication: NASOPHARYNGITIS
     Dosage: 750 MG, DAILY
     Route: 048
     Dates: start: 20120914, end: 20120916
  23. SLOW-K [Concomitant]
     Active Substance: POTASSIUM CHLORIDE
     Indication: MINERAL SUPPLEMENTATION
     Dosage: 600 MG, DAILY
     Route: 048
     Dates: start: 20120619
  24. SLOW-K [Concomitant]
     Active Substance: POTASSIUM CHLORIDE
     Indication: HYPOKALAEMIA
     Dosage: 600 MG, DAILY
     Route: 048
  25. SLOW-K [Concomitant]
     Active Substance: POTASSIUM CHLORIDE
     Dosage: 1800 MG DAILY AFTER EVERY MEAL, IN ADDITION TO ROUTINE ADMINISTRATION OF 600 MG DAILY
     Route: 048
     Dates: start: 20120919, end: 20120924
  26. SLOW-K [Concomitant]
     Active Substance: POTASSIUM CHLORIDE
     Dosage: 1200 MG, QD
     Dates: start: 20130208
  27. AMARYL [Concomitant]
     Active Substance: GLIMEPIRIDE
     Indication: DIABETES MELLITUS
     Dosage: 2 MG, DAILY
     Route: 048
     Dates: start: 20090422, end: 20120918
  28. MAGNESIUM OXIDE. [Concomitant]
     Active Substance: MAGNESIUM OXIDE
     Indication: CONSTIPATION PROPHYLAXIS
     Dosage: 990 MG, UNK
     Route: 048
     Dates: start: 20120301
  29. LUPRAC [Concomitant]
     Active Substance: TORSEMIDE
     Indication: POLYURIA
     Dosage: 4 MG, UNK
     Route: 048
     Dates: start: 20120228
  30. FUROSEMIDE. [Concomitant]
     Active Substance: FUROSEMIDE
     Indication: CARDIAC FAILURE CHRONIC
     Dosage: 120 MG, QD
     Dates: start: 20120519
  31. BAYASPIRIN [Concomitant]
     Active Substance: ASPIRIN
     Indication: THROMBOSIS PROPHYLAXIS
     Dosage: 100 MG, DAILY
     Route: 048
     Dates: start: 20090422, end: 20130520
  32. JANUVIA [Concomitant]
     Active Substance: SITAGLIPTIN PHOSPHATE
     Indication: DIABETES MELLITUS
     Dosage: 100 MG, DAILY
     Route: 048
     Dates: start: 20090422, end: 20120918
  33. ASPARA POTASSIUM [Concomitant]
     Active Substance: POTASSIUM ASPARTATE
     Indication: HYPOKALAEMIA
     Dosage: 600 MG, UNK
     Route: 048
     Dates: start: 20130208
  34. TANADOPA [Concomitant]
     Dosage: 1 G, DAILY (AFTER BREAKFAST)
     Route: 048
     Dates: start: 20120605, end: 20120921
  35. FLUITRAN [Concomitant]
     Active Substance: TRICHLORMETHIAZIDE
     Indication: POLYURIA
     Dosage: 1 MG, UNK
     Route: 048
     Dates: start: 20120613
  36. PLAVIX [Concomitant]
     Active Substance: CLOPIDOGREL BISULFATE
     Indication: THROMBOSIS PROPHYLAXIS
     Dosage: 75 MG, UNK
     Route: 048
     Dates: start: 20090422
  37. FUROSEMIDE. [Concomitant]
     Active Substance: FUROSEMIDE
     Indication: POLYURIA
     Dosage: 40 MG, QD
     Route: 048
     Dates: start: 20120519
  38. HUMULIN R [Concomitant]
     Active Substance: INSULIN HUMAN
     Indication: DIABETES MELLITUS
     Dosage: UNK
     Route: 042
     Dates: start: 20130205
  39. TETUCUR [Concomitant]
     Indication: IRON DEFICIENCY ANAEMIA
     Dosage: 300 MG, UNK
     Route: 048
     Dates: start: 20120621

REACTIONS (4)
  - Ventricular tachycardia [Recovered/Resolved]
  - Cardiac failure [Recovered/Resolved]
  - Adenocarcinoma gastric [Fatal]
  - Dehydration [Recovered/Resolved]

NARRATIVE: CASE EVENT DATE: 20120207
